FAERS Safety Report 7824129-0 (Version None)
Quarter: 2011Q4

REPORT INFORMATION
  Report Type: 
  Country: None (occurrence: None)
  Receive Date: 20111019
  Receipt Date: 20111010
  Transmission Date: 20120403
  Serious: Yes (Hospitalization, Other)
  Sender: FDA-Public Use
  Company Number: US-NOVOPROD-336894

PATIENT

DRUGS (1)
  1. LEVEMIR [Suspect]
     Indication: TYPE 2 DIABETES MELLITUS
     Dosage: 30 U, BID
     Route: 058
     Dates: start: 20110901, end: 20111004

REACTIONS (6)
  - BLOOD GLUCOSE INCREASED [None]
  - INJECTION SITE SWELLING [None]
  - PALPITATIONS [None]
  - VISION BLURRED [None]
  - OEDEMA PERIPHERAL [None]
  - DEVICE MALFUNCTION [None]
